FAERS Safety Report 4957278-5 (Version None)
Quarter: 2006Q1

REPORT INFORMATION
  Report Type: 
  Country: None (occurrence: None)
  Receive Date: 20060329
  Receipt Date: 20040901
  Transmission Date: 20060701
  Serious: Yes (Other)
  Sender: FDA-Public Use
  Company Number: DE-MERCK-0603USA04096

PATIENT
  Age: 40 Year
  Sex: Male

DRUGS (13)
  1. CRIXIVAN [Suspect]
     Indication: HIV INFECTION
     Route: 048
     Dates: end: 20030901
  2. VIDEX [Suspect]
     Indication: HIV INFECTION
     Route: 048
  3. SUSTIVA [Suspect]
     Indication: HIV INFECTION
     Route: 048
     Dates: end: 20030901
  4. ZIDOVUDINE [Suspect]
     Indication: HIV INFECTION
     Route: 065
     Dates: end: 20030901
  5. ZALCITABINE [Suspect]
     Indication: HIV INFECTION
     Route: 065
     Dates: end: 20030901
  6. LAMIVUDINE [Concomitant]
     Indication: HIV INFECTION
     Route: 065
     Dates: end: 20030901
  7. INVIRASE [Suspect]
     Indication: HIV INFECTION
     Route: 065
  8. RITONAVIR [Suspect]
     Indication: HIV INFECTION
     Route: 065
     Dates: end: 20030901
  9. NELFINAVIR MESYLATE [Suspect]
     Indication: HIV INFECTION
     Route: 065
     Dates: end: 20030901
  10. KALETRA [Suspect]
     Indication: HIV INFECTION
     Route: 065
     Dates: start: 20030901
  11. ABACAVIR SULFATE [Concomitant]
     Indication: HIV INFECTION
     Route: 065
     Dates: start: 20030901
  12. TENOFOVIR [Suspect]
     Indication: HIV INFECTION
     Route: 065
     Dates: start: 20030901
  13. ALDESLEUKIN [Suspect]
     Indication: HIV INFECTION
     Route: 065
     Dates: start: 20030901

REACTIONS (22)
  - ABDOMINAL PAIN [None]
  - ANXIETY [None]
  - BLOOD BILIRUBIN INCREASED [None]
  - BLOOD CREATINE INCREASED [None]
  - BODY TEMPERATURE INCREASED [None]
  - BONE PAIN [None]
  - COLITIS ULCERATIVE [None]
  - DEHYDRATION [None]
  - DEPRESSION [None]
  - EROSIVE OESOPHAGITIS [None]
  - FIBROSARCOMA [None]
  - GENERAL PHYSICAL HEALTH DETERIORATION [None]
  - HAEMOGLOBIN INCREASED [None]
  - HEPATIC ENZYME INCREASED [None]
  - HEPATIC STEATOSIS [None]
  - HYPERCHOLESTEROLAEMIA [None]
  - HYPERTRIGLYCERIDAEMIA [None]
  - LIPOATROPHY [None]
  - NAUSEA [None]
  - SPLENOMEGALY [None]
  - THROMBOCYTHAEMIA [None]
  - VOMITING [None]
